FAERS Safety Report 9073932 (Version 1)
Quarter: 2013Q1

REPORT INFORMATION
  Report Type: Spontaneous
  Country: US (occurrence: US)
  Receive Date: 20130128
  Receipt Date: 20130128
  Transmission Date: 20140127
  Serious: No
  Sender: FDA-Public Use
  Company Number: US-ABBOTT-12P-163-0916628-00

PATIENT
  Age: 56 None
  Sex: Male
  Weight: 106.69 kg

DRUGS (6)
  1. HUMIRA 40 MG/0.8 ML PEN [Suspect]
     Indication: CROHN^S DISEASE
     Route: 058
     Dates: start: 201201, end: 201201
  2. HUMIRA 40 MG/0.8 ML PEN [Suspect]
     Route: 058
     Dates: start: 201201, end: 201201
  3. HUMIRA 40 MG/0.8 ML PEN [Suspect]
     Route: 058
     Dates: start: 201202
  4. JANUVIA [Concomitant]
     Indication: DIABETES MELLITUS
  5. GLUCOPHAGE [Concomitant]
     Indication: DIABETES MELLITUS
  6. UNKNOWN MEDICATIONS [Concomitant]
     Indication: CROHN^S DISEASE

REACTIONS (5)
  - Injection site pain [Not Recovered/Not Resolved]
  - Injection site pain [Not Recovered/Not Resolved]
  - Injection site bruising [Not Recovered/Not Resolved]
  - Incorrect dose administered [Recovered/Resolved]
  - Device malfunction [Recovered/Resolved]
